FAERS Safety Report 11391650 (Version 2)
Quarter: 2015Q4

REPORT INFORMATION
  Report Type: Report from Study
  Country: FR (occurrence: FR)
  Receive Date: 20150818
  Receipt Date: 20151231
  Transmission Date: 20160304
  Serious: Yes (Life-Threatening)
  Sender: FDA-Public Use
  Company Number: FR-TEVA-586384ISR

PATIENT
  Age: 36 Year
  Weight: 94 kg

DRUGS (16)
  1. TRISENOX [Suspect]
     Active Substance: ARSENIC TRIOXIDE
     Dosage: SECOND CONSOLIDATION COURSE
     Route: 042
     Dates: start: 20121119, end: 20121218
  2. ARACYTINE [Suspect]
     Active Substance: CYTARABINE
     Dosage: FIRST CONSOLIDATION COURSE
     Dates: start: 20121002, end: 20121026
  3. TRETINOIN. [Suspect]
     Active Substance: TRETINOIN
     Indication: ACUTE PROMYELOCYTIC LEUKAEMIA
     Dosage: MAINTENANCE TREATMENT
     Route: 065
     Dates: start: 201301, end: 201501
  4. METHOTREXATE [Suspect]
     Active Substance: METHOTREXATE
     Indication: ACUTE PROMYELOCYTIC LEUKAEMIA
     Dosage: MAINTENANCE TREATMENT
     Route: 065
     Dates: start: 201301, end: 201501
  5. TRISENOX [Suspect]
     Active Substance: ARSENIC TRIOXIDE
     Dosage: FIRST CONSOLIDATION COURSE
     Route: 042
     Dates: start: 20121002, end: 20121026
  6. IDARUBICIN [Suspect]
     Active Substance: IDARUBICIN
     Dosage: FIRST CONSOLIDATION COURSE
     Route: 065
     Dates: start: 20121002, end: 20121026
  7. ARACYTINE [Suspect]
     Active Substance: CYTARABINE
     Dosage: INITIATION TREATMENT
     Dates: start: 201208
  8. TRISENOX [Suspect]
     Active Substance: ARSENIC TRIOXIDE
     Indication: ACUTE PROMYELOCYTIC LEUKAEMIA
     Dosage: MAINTENANCE TREATMENT
     Route: 042
     Dates: start: 201301, end: 201501
  9. TRETINOIN. [Suspect]
     Active Substance: TRETINOIN
     Dosage: INDUCTION TREATMENT
     Route: 065
     Dates: start: 201208
  10. IDARUBICIN [Suspect]
     Active Substance: IDARUBICIN
     Dosage: SECOND CONSOLIDATION COURSE
     Route: 065
     Dates: start: 20121119, end: 20121218
  11. 6-MERCAPTOPURINE [Suspect]
     Active Substance: MERCAPTOPURINE
     Indication: ACUTE PROMYELOCYTIC LEUKAEMIA
     Dosage: MAINTENANCE TREATMENT
     Route: 065
     Dates: start: 201301, end: 201501
  12. DEXAMETHASONE. [Suspect]
     Active Substance: DEXAMETHASONE
     Indication: ACUTE PROMYELOCYTIC LEUKAEMIA
     Dosage: INDUCTION TREATMENT
     Route: 065
     Dates: start: 201208
  13. IDARUBICIN [Suspect]
     Active Substance: IDARUBICIN
     Indication: ACUTE PROMYELOCYTIC LEUKAEMIA
     Route: 065
     Dates: end: 201501
  14. IDARUBICIN [Suspect]
     Active Substance: IDARUBICIN
     Dosage: INDUCTION TREATMENT
     Route: 065
     Dates: start: 201208
  15. ARACYTINE [Suspect]
     Active Substance: CYTARABINE
     Indication: ACUTE PROMYELOCYTIC LEUKAEMIA
     Route: 065
     Dates: end: 201501
  16. ARACYTINE [Suspect]
     Active Substance: CYTARABINE
     Dosage: SECOND CONSOLIDATION COURSE
     Dates: start: 20121119, end: 20121218

REACTIONS (1)
  - Myelodysplastic syndrome [Recovered/Resolved]

NARRATIVE: CASE EVENT DATE: 20150731
